FAERS Safety Report 4620765-3 (Version None)
Quarter: 2005Q1

REPORT INFORMATION
  Report Type: 
  Country: None (occurrence: None)
  Receive Date: 20050325
  Receipt Date: 20050314
  Transmission Date: 20050727
  Serious: Yes (Other)
  Sender: FDA-Public Use
  Company Number: HQWYE465522FEB05

PATIENT
  Age: 50 Year
  Sex: Female
  Weight: 54.93 kg

DRUGS (9)
  1. PREMARIN [Suspect]
     Indication: HOT FLUSH
     Dosage: 0.625 MG DAILY, ORAL
     Route: 048
     Dates: start: 20030301
  2. PREMARIN [Suspect]
     Indication: OSTEOPOROSIS
     Dosage: 0.625 MG DAILY, ORAL
     Route: 048
     Dates: start: 20030301
  3. PROGESTERONE [Suspect]
     Indication: HORMONE REPLACEMENT THERAPY
     Dosage: BUT TOOK  DAILY, ORAL
     Route: 048
     Dates: start: 20030301, end: 20030701
  4. HUMULIN R [Concomitant]
  5. HUMULIN N [Concomitant]
  6. SYNTROID (LEVOTHYROXINE SODIUM) [Concomitant]
  7. ERYTHROMYCIN [Concomitant]
  8. ATENOLOL [Concomitant]
  9. UNSPECIFIED ANTIBIOTIC [Concomitant]

REACTIONS (18)
  - ABDOMINAL PAIN [None]
  - APPENDICITIS PERFORATED [None]
  - AXILLARY MASS [None]
  - BACK PAIN [None]
  - BLOOD GLUCOSE DECREASED [None]
  - DRUG EFFECT DECREASED [None]
  - GASTROINTESTINAL DISORDER [None]
  - GASTROINTESTINAL OEDEMA [None]
  - HAEMORRHAGE [None]
  - HALO VISION [None]
  - HOT FLUSH [None]
  - MENOMETRORRHAGIA [None]
  - OVARIAN DISORDER [None]
  - PAIN IN EXTREMITY [None]
  - UTERINE HAEMORRHAGE [None]
  - VISION BLURRED [None]
  - VISUAL DISTURBANCE [None]
  - VOMITING [None]
